FAERS Safety Report 8019850-8 (Version None)
Quarter: 2012Q1

REPORT INFORMATION
  Report Type: 
  Country: None (occurrence: None)
  Receive Date: 20120103
  Receipt Date: 20111219
  Transmission Date: 20120608
  Serious: Yes (Hospitalization)
  Sender: FDA-Public Use
  Company Number: JP-PFIZER INC-2012000839

PATIENT
  Age: 60 Year
  Sex: Male
  Weight: 67 kg

DRUGS (7)
  1. METFORMIN HCL [Concomitant]
     Indication: DIABETES MELLITUS
     Dosage: UNK
     Route: 048
     Dates: end: 20110601
  2. AMARYL [Concomitant]
     Indication: DIABETES MELLITUS
     Dosage: UNK
     Route: 048
  3. METFORMIN HYDROCHLORIDE [Concomitant]
     Indication: DIABETES MELLITUS
     Dosage: UNK
     Route: 048
     Dates: start: 20110601
  4. RHYTHMY [Concomitant]
     Indication: INSOMNIA
     Dosage: UNK
     Route: 048
  5. ATORVASTATIN CALCIUM [Suspect]
     Indication: HYPERCHOLESTEROLAEMIA
     Dosage: 10 MG, 1X/DAY
     Dates: start: 20110330
  6. BASEN [Concomitant]
     Indication: DIABETES MELLITUS
     Dosage: UNK
     Route: 048
  7. DEPAS [Concomitant]
     Indication: INSOMNIA
     Dosage: UNK
     Route: 048

REACTIONS (1)
  - MYOCARDIAL INFARCTION [None]
